FAERS Safety Report 16482810 (Version 2)
Quarter: 2024Q1

REPORT INFORMATION
  Report Type: Spontaneous
  Country: BE (occurrence: BE)
  Receive Date: 20190627
  Receipt Date: 20240112
  Transmission Date: 20240409
  Serious: Yes (Life-Threatening, Other)
  Sender: FDA-Public Use
  Company Number: BE-AUROBINDO-AUR-APL-2019-037080

PATIENT
  Age: 60 Year
  Sex: Male
  Weight: 66 kg

DRUGS (1)
  1. MOXIFLOXACIN [Suspect]
     Active Substance: MOXIFLOXACIN
     Indication: Infection
     Dosage: 400 MILLIGRAM, ONCE A DAY, 400 MG/J
     Route: 048
     Dates: start: 20170712, end: 20170727

REACTIONS (2)
  - Aortic dissection [Unknown]
  - Tendonitis [Unknown]

NARRATIVE: CASE EVENT DATE: 20170927
